FAERS Safety Report 22517551 (Version 2)
Quarter: 2023Q2

REPORT INFORMATION
  Report Type: Spontaneous
  Country: US (occurrence: US)
  Receive Date: 20230604
  Receipt Date: 20230615
  Transmission Date: 20230721
  Serious: Yes (Other)
  Sender: FDA-Public Use
  Company Number: US-MLMSERVICE-20230522-4296101-1

PATIENT
  Age: 36 Year
  Sex: Male

DRUGS (2)
  1. PREDNISONE [Suspect]
     Active Substance: PREDNISONE
     Indication: Colitis ulcerative
     Dosage: UNK (FOR FOUR YEARS)
     Route: 065
     Dates: start: 2013
  2. HUMIRA [Suspect]
     Active Substance: ADALIMUMAB
     Indication: Colitis ulcerative
     Dosage: UNK (FOR FOUR YEARS)
     Route: 065
     Dates: start: 2013

REACTIONS (1)
  - Hodgkin^s disease stage III [Recovering/Resolving]

NARRATIVE: CASE EVENT DATE: 20170101
